FAERS Safety Report 25788294 (Version 3)
Quarter: 2025Q4

REPORT INFORMATION
  Report Type: Spontaneous
  Country: US (occurrence: US)
  Receive Date: 20250910
  Receipt Date: 20251124
  Transmission Date: 20260118
  Serious: No
  Sender: INSUD PHARMA
  Company Number: US-INSUD PHARMA-2509US07260

PATIENT

DRUGS (3)
  1. SLYND [Suspect]
     Active Substance: DROSPIRENONE
     Indication: Product used for unknown indication
     Dosage: UNK
     Route: 048
     Dates: start: 2025
  2. SLYND [Suspect]
     Active Substance: DROSPIRENONE
     Dosage: UNK, QD
     Route: 048
     Dates: start: 202501, end: 2025
  3. ENILLORING [Suspect]
     Active Substance: ETHINYL ESTRADIOL\ETONOGESTREL
     Indication: Product used for unknown indication
     Dosage: UNK
     Dates: start: 2025, end: 2025

REACTIONS (7)
  - Menstruation delayed [Not Recovered/Not Resolved]
  - Wrong technique in product usage process [Unknown]
  - Product dose omission issue [Unknown]
  - Heavy menstrual bleeding [Recovered/Resolved]
  - Intermenstrual bleeding [Not Recovered/Not Resolved]
  - Intentional dose omission [Unknown]
  - Maternal exposure during breast feeding [Unknown]

NARRATIVE: CASE EVENT DATE: 20250101
